FAERS Safety Report 5824157-0 (Version None)
Quarter: 2008Q3

REPORT INFORMATION
  Report Type: 
  Country: None (occurrence: None)
  Receive Date: 20080722
  Receipt Date: 20080704
  Transmission Date: 20090109
  Serious: Yes (Life-Threatening, Hospitalization)
  Sender: FDA-Public Use
  Company Number: 8034603

PATIENT
  Age: 69 Year
  Sex: Female
  Weight: 65 kg

DRUGS (7)
  1. KEPPRA [Suspect]
     Indication: PARTIAL SEIZURES
     Dosage: 500 MG 1/D PO
     Route: 048
     Dates: start: 20080421, end: 20080506
  2. ENALAPRIL MALEATE [Suspect]
     Indication: HYPERTENSION
     Dosage: 20 MG 1/D PO
     Route: 048
     Dates: start: 20070101
  3. PAROXETINE HCL [Suspect]
     Indication: DEMENTIA
     Dosage: 20 MG 1/D PO
     Route: 048
     Dates: start: 20070101
  4. VALPROATE SODIUM [Suspect]
     Indication: EPILEPSY
     Dosage: 750 MG 1/D PO
     Route: 048
     Dates: start: 20070101
  5. FLAVONODIE EXTRACTED FROM RUTACEA [Concomitant]
  6. INDAPAMIDE [Concomitant]
  7. NIFEDIPINE [Concomitant]

REACTIONS (3)
  - BLOOD CREATINE PHOSPHOKINASE INCREASED [None]
  - DRUG INTERACTION [None]
  - SOMNOLENCE [None]
